FAERS Safety Report 11603675 (Version 1)
Quarter: 2015Q4

REPORT INFORMATION
  Report Type: Report from Study
  Country: GB (occurrence: GB)
  Receive Date: 20151007
  Receipt Date: 20151007
  Transmission Date: 20160304
  Serious: Yes (Other)
  Sender: FDA-Public Use
  Company Number: GB-ROCHE-1639368

PATIENT

DRUGS (3)
  1. TRASTUZUMAB [Suspect]
     Active Substance: TRASTUZUMAB
     Route: 042
  2. TRASTUZUMAB [Suspect]
     Active Substance: TRASTUZUMAB
     Indication: BREAST CANCER METASTATIC
     Route: 042
  3. AFATINIB [Suspect]
     Active Substance: AFATINIB
     Indication: BREAST CANCER METASTATIC
     Route: 048

REACTIONS (4)
  - Haemoglobin decreased [Unknown]
  - Ejection fraction decreased [Unknown]
  - Diarrhoea [Unknown]
  - Blood alkaline phosphatase increased [Unknown]
